FAERS Safety Report 7473483-0 (Version None)
Quarter: 2011Q2

REPORT INFORMATION
  Report Type: 
  Country: None (occurrence: None)
  Receive Date: 20110511
  Receipt Date: 20110506
  Transmission Date: 20111010
  Serious: No
  Sender: FDA-Public Use
  Company Number: US-TEVA-281017USA

PATIENT
  Sex: Female
  Weight: 54.48 kg

DRUGS (3)
  1. YAZ B-FOLATE [Concomitant]
     Indication: CONTRACEPTION
     Route: 048
  2. SOLODYN [Concomitant]
     Indication: ACNE
     Route: 048
  3. PLAN B ONE-STEP [Suspect]
     Indication: POST COITAL CONTRACEPTION
     Dosage: 1.5 MILLIGRAM;
     Route: 048
     Dates: start: 20110430, end: 20110430

REACTIONS (2)
  - BREAST PAIN [None]
  - NAUSEA [None]
